FAERS Safety Report 17993896 (Version 1)
Quarter: 2020Q3

REPORT INFORMATION
  Report Type: Spontaneous
  Country: ES (occurrence: ES)
  Receive Date: 20200708
  Receipt Date: 20200708
  Transmission Date: 20201103
  Serious: Yes (Hospitalization)
  Sender: FDA-Public Use
  Company Number: ES-AUROBINDO-AUR-APL-2020-033790

PATIENT
  Age: 14 Year
  Sex: Male
  Weight: 22.5 kg

DRUGS (3)
  1. TEICOPLANIN [Suspect]
     Active Substance: TEICOPLANIN
     Indication: PNEUMONIA
     Dosage: 12 MILLIGRAM, TWO TIMES A DAY
     Route: 042
     Dates: start: 20200525, end: 20200602
  2. PIPERACILLIN AND TAZOBACTAM [Suspect]
     Active Substance: PIPERACILLIN SODIUM\TAZOBACTAM SODIUM
     Indication: PNEUMONIA
     Dosage: 1 GRAM, 3 TIMES A DAY
     Route: 042
     Dates: start: 20200528, end: 20200605
  3. METAMIZOLE [Suspect]
     Active Substance: METAMIZOLE
     Indication: PAIN
     Dosage: 300 MILLIGRAM, 3 TIMES A DAY
     Route: 042
     Dates: start: 20200518, end: 20200609

REACTIONS (3)
  - Pyrexia [Recovered/Resolved]
  - Lymphadenopathy [Recovered/Resolved]
  - Rash morbilliform [Recovered/Resolved]

NARRATIVE: CASE EVENT DATE: 20200605
